FAERS Safety Report 12094845 (Version 1)
Quarter: 2016Q1

REPORT INFORMATION
  Report Type: Spontaneous
  Country: US (occurrence: US)
  Receive Date: 20160219
  Receipt Date: 20160219
  Transmission Date: 20160526
  Serious: Yes (Hospitalization, Other)
  Sender: FDA-Public Use
  Company Number: US-ABBVIE-15P-163-1441368-00

PATIENT
  Sex: Male

DRUGS (2)
  1. ANDROGEL [Suspect]
     Active Substance: TESTOSTERONE
     Indication: BLOOD TESTOSTERONE DECREASED
     Route: 065
     Dates: start: 200509, end: 200511
  2. ANDROGEL [Suspect]
     Active Substance: TESTOSTERONE
     Route: 065
     Dates: start: 201109, end: 201404

REACTIONS (7)
  - Pain [Unknown]
  - Impaired driving ability [Unknown]
  - Impaired work ability [Unknown]
  - Injury [Unknown]
  - Myocardial infarction [Unknown]
  - Emotional distress [Unknown]
  - Economic problem [Unknown]

NARRATIVE: CASE EVENT DATE: 201111
